FAERS Safety Report 21838310 (Version 1)
Quarter: 2023Q1

REPORT INFORMATION
  Report Type: Spontaneous
  Country: US (occurrence: None)
  Receive Date: 20230107
  Receipt Date: 20230107
  Transmission Date: 20230417
  Serious: No
  Sender: FDA-Public Use
  Company Number: None

PATIENT
  Age: 22 Year
  Sex: Male
  Weight: 81 kg

DRUGS (1)
  1. ZANTAC 360 [Suspect]
     Active Substance: FAMOTIDINE
     Indication: Dyspepsia
     Dosage: OTHER QUANTITY : 1 TABLET(S);?FREQUENCY : TWICE A DAY;?
     Route: 048
     Dates: start: 20230106, end: 20230107

REACTIONS (4)
  - Oropharyngeal pain [None]
  - Pharyngeal inflammation [None]
  - Headache [None]
  - Pain [None]

NARRATIVE: CASE EVENT DATE: 20230106
